FAERS Safety Report 6663707-1 (Version None)
Quarter: 2010Q1

REPORT INFORMATION
  Report Type: 
  Country: None (occurrence: None)
  Receive Date: 20100331
  Receipt Date: 20100331
  Transmission Date: 20100710
  Serious: No
  Sender: FDA-Public Use
  Company Number: None

PATIENT

DRUGS (1)
  1. PREMPRO [Suspect]
     Dosage: 0.45MG/1.5MG

REACTIONS (2)
  - MENOPAUSAL SYMPTOMS [None]
  - PRODUCT SUBSTITUTION ISSUE [None]
